FAERS Safety Report 24384496 (Version 2)
Quarter: 2024Q4

REPORT INFORMATION
  Report Type: Spontaneous
  Country: US (occurrence: US)
  Receive Date: 20241001
  Receipt Date: 20241211
  Transmission Date: 20250115
  Serious: Yes (Other)
  Sender: MERCK
  Company Number: US-009507513-2409USA010281

PATIENT
  Age: 81 Year
  Sex: Male
  Weight: 77.6 kg

DRUGS (30)
  1. WINREVAIR [Suspect]
     Active Substance: SOTATERCEPT-CSRK
     Indication: Product used for unknown indication
     Dosage: UNK
     Dates: start: 2024, end: 2024
  2. WINREVAIR [Suspect]
     Active Substance: SOTATERCEPT-CSRK
     Dosage: UNK
     Dates: start: 20240919
  3. WINREVAIR [Suspect]
     Active Substance: SOTATERCEPT-CSRK
     Dosage: UNK
     Dates: start: 20241125
  4. TYVASO [Suspect]
     Active Substance: TREPROSTINIL
     Indication: Pulmonary arterial hypertension
     Dosage: 72 MICROGRAM (12 BREATHS), QID
     Dates: start: 20210917
  5. METFORMIN HYDROCHLORIDE [Concomitant]
     Active Substance: METFORMIN HYDROCHLORIDE
     Dosage: UNK
  6. METOPROLOL TARTRATE [Concomitant]
     Active Substance: METOPROLOL TARTRATE
     Dosage: UNK
  7. VITAMIN C [Concomitant]
     Active Substance: ASCORBIC ACID
     Dosage: UNK
  8. FAMOTIDINE [Concomitant]
     Active Substance: FAMOTIDINE
     Dosage: UNK
  9. ALBUTEROL\IPRATROPIUM [Concomitant]
     Active Substance: ALBUTEROL\IPRATROPIUM
     Dosage: UNK
  10. OMEPRAZOLE [Concomitant]
     Active Substance: OMEPRAZOLE
     Dosage: UNK
  11. SIMVASTATIN [Concomitant]
     Active Substance: SIMVASTATIN
     Dosage: UNK
  12. VITAMIN B COMPLEX [Concomitant]
     Active Substance: CYANOCOBALAMIN\DEXPANTHENOL\NIACINAMIDE\PYRIDOXINE HYDROCHLORIDE\RIBOFLAVIN 5^-PHOSPHATE SODIUM\THIA
     Dosage: UNK
  13. ADVAIR HFA [Concomitant]
     Active Substance: FLUTICASONE PROPIONATE\SALMETEROL XINAFOATE
     Dosage: UNK
  14. POTASSIUM CHLORIDE [Concomitant]
     Active Substance: POTASSIUM CHLORIDE
     Dosage: UNK
  15. PREDNISONE [Concomitant]
     Active Substance: PREDNISONE
     Dosage: UNK
  16. IPRATROPIUM BROMIDE [Concomitant]
     Active Substance: IPRATROPIUM BROMIDE
     Dosage: UNK
  17. SILDENAFIL CITRATE [Concomitant]
     Active Substance: SILDENAFIL CITRATE
     Dosage: UNK
  18. ALBUTEROL SULFATE [Concomitant]
     Active Substance: ALBUTEROL SULFATE
     Dosage: UNK
  19. FLONASE ALLERGY RELIEF [Concomitant]
     Active Substance: FLUTICASONE PROPIONATE
     Dosage: UNK
  20. SODIUM CHLORIDE [Concomitant]
     Active Substance: SODIUM CHLORIDE
     Dosage: UNK
  21. MAGNESIUM [Concomitant]
     Active Substance: MAGNESIUM
     Dosage: UNK
  22. OXYGEN [Concomitant]
     Active Substance: OXYGEN
     Dosage: UNK
  23. PROBIOTICS NOS [Concomitant]
     Active Substance: PROBIOTICS NOS
     Dosage: UNK
  24. ZINC [Concomitant]
     Active Substance: ZINC
     Dosage: UNK
  25. BUMETANIDE [Concomitant]
     Active Substance: BUMETANIDE
     Dosage: UNK
  26. AMLODIPINE BESYLATE [Concomitant]
     Active Substance: AMLODIPINE BESYLATE
     Dosage: UNK
  27. NOVOLOG [Concomitant]
     Active Substance: INSULIN ASPART
     Dosage: UNK
  28. MINERALS\VITAMINS [Concomitant]
     Active Substance: MINERALS\VITAMINS
     Dosage: UNK
  29. IRON [Concomitant]
     Active Substance: IRON
     Dosage: UNK
  30. ASPIRIN [Concomitant]
     Active Substance: ASPIRIN

REACTIONS (2)
  - Haematochezia [Unknown]
  - Haemoglobin increased [Unknown]

NARRATIVE: CASE EVENT DATE: 20240920
